FAERS Safety Report 25132708 (Version 2)
Quarter: 2025Q3

REPORT INFORMATION
  Report Type: Spontaneous
  Country: US (occurrence: US)
  Receive Date: 20250328
  Receipt Date: 20250810
  Transmission Date: 20251021
  Serious: Yes (Other)
  Sender: ALEXION PHARMACEUTICALS
  Company Number: US-AstraZeneca-CH-00833404A

PATIENT

DRUGS (1)
  1. VOYDEYA [Suspect]
     Active Substance: DANICOPAN
     Route: 065

REACTIONS (2)
  - Extravascular haemolysis [Not Recovered/Not Resolved]
  - Hepatic enzyme increased [Unknown]
